FAERS Safety Report 12733915 (Version 1)
Quarter: 2016Q3

REPORT INFORMATION
  Report Type: Spontaneous
  Country: FR (occurrence: FR)
  Receive Date: 20160912
  Receipt Date: 20160912
  Transmission Date: 20161109
  Serious: Yes (Hospitalization)
  Sender: FDA-Public Use
  Company Number: FR-ROCHE-1827827

PATIENT
  Age: 68 Year
  Sex: Male

DRUGS (8)
  1. ROVALCYTE [Suspect]
     Active Substance: VALGANCICLOVIR HYDROCHLORIDE
     Indication: ORGAN TRANSPLANT
     Dosage: 250 MG
     Route: 048
     Dates: start: 201604
  2. CORTANCYL [Suspect]
     Active Substance: PREDNISONE
     Indication: ORGAN TRANSPLANT
     Route: 048
     Dates: start: 201604
  3. MECIR [Concomitant]
     Active Substance: TAMSULOSIN HYDROCHLORIDE
  4. INEXIUM [Concomitant]
     Active Substance: ESOMEPRAZOLE
  5. HAVLANE [Concomitant]
     Active Substance: LOPRAZOLAM
  6. PROGRAF [Suspect]
     Active Substance: TACROLIMUS\TACROLIMUS ANHYDROUS
     Indication: ORGAN TRANSPLANT
     Route: 048
     Dates: start: 201604
  7. CELLCEPT [Suspect]
     Active Substance: MYCOPHENOLATE MOFETIL\MYCOPHENOLATE MOFETIL HYDROCHLORIDE
     Indication: ORGAN TRANSPLANT
     Dosage: 500 MG
     Route: 048
     Dates: start: 201604
  8. BACTRIM [Suspect]
     Active Substance: SULFAMETHOXAZOLE\TRIMETHOPRIM
     Indication: ORGAN TRANSPLANT
     Dosage: 0-1-0
     Route: 048
     Dates: start: 201604

REACTIONS (1)
  - Pulmonary embolism [Recovered/Resolved]

NARRATIVE: CASE EVENT DATE: 20160709
